FAERS Safety Report 15366461 (Version 1)
Quarter: 2018Q3

REPORT INFORMATION
  Report Type: Spontaneous
  Country: US (occurrence: US)
  Receive Date: 20180831
  Receipt Date: 20180831
  Transmission Date: 20181010
  Serious: Yes (Disabling)
  Sender: FDA-Public Use
  Company Number: None

PATIENT
  Age: 45 Year
  Sex: Female
  Weight: 99 kg

DRUGS (9)
  1. DAILY VIT [Concomitant]
  2. LEVOTHYROXINE. [Concomitant]
     Active Substance: LEVOTHYROXINE
  3. TOPIRIMATE [Suspect]
     Active Substance: TOPIRAMATE
     Indication: MIGRAINE
     Dosage: ?          QUANTITY:1 TABLET
     Route: 048
     Dates: end: 20180820
  4. VENLAFAXINE [Concomitant]
     Active Substance: VENLAFAXINE HYDROCHLORIDE
  5. MELATONIN [Concomitant]
     Active Substance: MELATONIN
  6. TOPIRIMATE [Suspect]
     Active Substance: TOPIRAMATE
     Indication: VERTIGO
     Dosage: ?          QUANTITY:1 TABLET
     Route: 048
     Dates: end: 20180820
  7. CYCLOBENZEPRINE [Concomitant]
  8. GLUCOSAMINE [Concomitant]
     Active Substance: GLUCOSAMINE
  9. TMJ SPLINT [Concomitant]

REACTIONS (9)
  - Gastrooesophageal reflux disease [None]
  - Nausea [None]
  - Alopecia [None]
  - Retching [None]
  - Weight decreased [None]
  - Decreased appetite [None]
  - Aphasia [None]
  - Vomiting [None]
  - Abdominal pain upper [None]
